FAERS Safety Report 16111314 (Version 2)
Quarter: 2019Q2

REPORT INFORMATION
  Report Type: Report from Study
  Country: GB (occurrence: GB)
  Receive Date: 20190325
  Receipt Date: 20190402
  Transmission Date: 20190711
  Serious: Yes (Hospitalization, Disabling, Other)
  Sender: FDA-Public Use
  Company Number: GB-TORRENT-00020622

PATIENT
  Age: 92 Year
  Sex: Male
  Weight: 98 kg

DRUGS (9)
  1. EYLEA [Suspect]
     Active Substance: AFLIBERCEPT
     Indication: MACULAR DEGENERATION
     Dosage: UNKNOWN
     Route: 065
  2. AVASTIN [Suspect]
     Active Substance: BEVACIZUMAB
     Indication: DRY AGE-RELATED MACULAR DEGENERATION
     Dosage: 2 SHOTS
     Dates: start: 201805
  3. LUCENTIS [Suspect]
     Active Substance: RANIBIZUMAB
     Indication: CHOROIDAL NEOVASCULARISATION
     Dosage: 2 SHOTS
     Dates: start: 20180501
  4. CARBAMAZEPINE. [Suspect]
     Active Substance: CARBAMAZEPINE
     Indication: PAIN
     Dosage: 400 MG, TID
     Route: 048
     Dates: end: 20140828
  5. ASPIRIN. [Concomitant]
     Active Substance: ASPIRIN
     Indication: PRODUCT USED FOR UNKNOWN INDICATION
     Dosage: 75 MG, QD
     Route: 065
  6. SIMVASTATIN. [Concomitant]
     Active Substance: SIMVASTATIN
     Indication: PRODUCT USED FOR UNKNOWN INDICATION
     Dosage: 40 MG QD (TAKEN AT NIGHT)
     Route: 065
  7. AMITRIPTYLINE HYDROCHLORIDE. [Suspect]
     Active Substance: AMITRIPTYLINE HYDROCHLORIDE
     Indication: PAIN
     Dosage: 10 MG, QD (TAKEN AT NIGHT)
     Route: 048
     Dates: start: 20140828
  8. OMEPRAZOLE. [Concomitant]
     Active Substance: OMEPRAZOLE
     Indication: PRODUCT USED FOR UNKNOWN INDICATION
     Dosage: 10 MG, QD
     Route: 065
  9. ALBUTEROL. [Concomitant]
     Active Substance: ALBUTEROL
     Indication: ASTHMA
     Dosage: UNKNOWN

REACTIONS (19)
  - Scar [Not Recovered/Not Resolved]
  - Confusional state [Recovered/Resolved]
  - Psoriasis [Unknown]
  - Muscular weakness [Unknown]
  - Agitation [Unknown]
  - Loss of consciousness [Unknown]
  - Dry age-related macular degeneration [Unknown]
  - Slow speech [Unknown]
  - Abdominal pain upper [Unknown]
  - Pulmonary thrombosis [Unknown]
  - Atrial fibrillation [Not Recovered/Not Resolved]
  - Skin exfoliation [Unknown]
  - Fall [Unknown]
  - Blindness unilateral [Unknown]
  - Blindness [Not Recovered/Not Resolved]
  - Neovascular age-related macular degeneration [Unknown]
  - Dyspnoea [Recovered/Resolved]
  - Blood cholesterol increased [Unknown]
  - Off label use [Unknown]

NARRATIVE: CASE EVENT DATE: 2018
